FAERS Safety Report 20988813 (Version 2)
Quarter: 2022Q3

REPORT INFORMATION
  Report Type: Report from Study
  Country: GB (occurrence: GB)
  Receive Date: 20220621
  Receipt Date: 20220707
  Transmission Date: 20221026
  Serious: Yes (Death, Life-Threatening, Hospitalization, Other)
  Sender: FDA-Public Use
  Company Number: GB-BRISTOL-MYERS SQUIBB COMPANY-2022-057791

PATIENT
  Sex: Male
  Weight: 30.2 kg

DRUGS (3)
  1. NIVOLUMAB [Suspect]
     Active Substance: NIVOLUMAB
     Indication: Neuroblastoma
     Dosage: 3 MG/KG D1,15, 29
     Route: 065
     Dates: start: 20220609
  2. DINUTUXIMAB BETA [Suspect]
     Active Substance: DINUTUXIMAB BETA
     Indication: Neuroblastoma
     Dosage: 10 MG/M2
     Route: 065
     Dates: start: 20220510
  3. IOBENGUANE I-131 [Suspect]
     Active Substance: IOBENGUANE I-131
     Indication: Neuroblastoma
     Dosage: DOSE- 145.5 MCI
     Route: 065
     Dates: start: 20220427

REACTIONS (2)
  - Febrile neutropenia [Not Recovered/Not Resolved]
  - Pneumonia [Fatal]

NARRATIVE: CASE EVENT DATE: 20220610
